FAERS Safety Report 19927104 (Version 1)
Quarter: 2021Q4

REPORT INFORMATION
  Report Type: Spontaneous
  Country: CN (occurrence: CN)
  Receive Date: 20211006
  Receipt Date: 20211006
  Transmission Date: 20220303
  Serious: Yes (Life-Threatening, Disabling, Other)
  Sender: FDA-Public Use
  Company Number: CN-BAXTER-2021BAX024534

PATIENT
  Age: 68 Year
  Sex: Male
  Weight: 60 kg

DRUGS (25)
  1. CYCLOPHOSPHAMIDE [Suspect]
     Active Substance: CYCLOPHOSPHAMIDE
     Indication: Non-Hodgkin^s lymphoma
     Dosage: DAY 1; FOURTH CYCLE OF R-CHOEP CHEMOTHERAPY; CYCLOPHOSPHAMIDE 1 G + NORMAL SALINE 500 ML
     Route: 041
     Dates: start: 20200801, end: 20200801
  2. CYCLOPHOSPHAMIDE [Suspect]
     Active Substance: CYCLOPHOSPHAMIDE
     Dosage: DOSE RE-INTRODUCED; CYCLOPHOSPHAMIDE + NORMAL SALINE
     Route: 041
  3. CYCLOPHOSPHAMIDE [Suspect]
     Active Substance: CYCLOPHOSPHAMIDE
     Dosage: FIRST TO THIRD CYCLE OF R-CHOEP CHEMOTHERAPY
     Route: 041
  4. SODIUM CHLORIDE [Suspect]
     Active Substance: SODIUM CHLORIDE
     Indication: Medication dilution
     Dosage: FOURTH CYCLE OF R-CHOEP CHEMOTHERAPY; CYCLOPHOSPHAMIDE 1 G + NORMAL SALINE 500 ML
     Route: 041
     Dates: start: 20200801, end: 20200801
  5. SODIUM CHLORIDE [Suspect]
     Active Substance: SODIUM CHLORIDE
     Dosage: DAY 1; FOURTH CYCLE OF R-CHOEP CHEMOTHERAPY; VINORELBINE TARTRATE 40 MG + NORMAL SALINE 250 ML
     Route: 041
     Dates: start: 20200801, end: 20200801
  6. SODIUM CHLORIDE [Suspect]
     Active Substance: SODIUM CHLORIDE
     Dosage: DAY 1, 3 AND 5; FOURTH CYCLE OF R-CHOEP CHEMOTHERAPY; ETOPOSIDE 0.1 G + NORMAL SALINE 500 ML
     Route: 041
     Dates: start: 20200801, end: 20200805
  7. SODIUM CHLORIDE [Suspect]
     Active Substance: SODIUM CHLORIDE
     Dosage: DOSE RE-INTRODUCED; CYCLOPHOSPHAMIDE + NORMAL SALINE
     Route: 041
  8. SODIUM CHLORIDE [Suspect]
     Active Substance: SODIUM CHLORIDE
     Dosage: DOSE RE-INTRODUCED; VINORELBINE TARTRATE+ NORMAL SALINE
     Route: 041
  9. SODIUM CHLORIDE [Suspect]
     Active Substance: SODIUM CHLORIDE
     Dosage: DOSE RE-INTRODUCED; ETOPOSIDE + NORMAL SALINE
     Route: 041
  10. SODIUM CHLORIDE [Suspect]
     Active Substance: SODIUM CHLORIDE
     Dosage: FIRST TO THIRD CYCLE OF R-CHOEP CHEMOTHERAPY; ETOPOSIDE + NORMAL SALINE
     Route: 041
  11. SODIUM CHLORIDE [Suspect]
     Active Substance: SODIUM CHLORIDE
     Dosage: FIRST TO THIRD CYCLE OF R-CHOEP CHEMOTHERAPY; VINORELBINE TARTRATE + NORMAL SALINE
     Route: 041
  12. SODIUM CHLORIDE [Suspect]
     Active Substance: SODIUM CHLORIDE
     Dosage: FIRST TO THIRD CYCLE OF R-CHOEP CHEMOTHERAPY; CYCLOPHOSPHAMIDE + NORMAL SALINE
     Route: 041
  13. DEXTROSE [Suspect]
     Active Substance: DEXTROSE
     Indication: Medication dilution
     Dosage: DAY 1; FOURTH CYCLE OF R-CHOEP CHEMOTHERAPY; RITUXIMAB 600 MG + 5% GLUCOSE 600 ML
     Route: 041
     Dates: start: 20200801, end: 20200801
  14. DEXTROSE [Suspect]
     Active Substance: DEXTROSE
     Dosage: DOSE RE-INTRODUCED; RITUXIMAB + 5% GLUCOSE
     Route: 041
  15. DEXTROSE [Suspect]
     Active Substance: DEXTROSE
     Dosage: FIRST TO THIRD CYCLE OF R-CHOEP CHEMOTHERAPY; RITUXIMAB + 5% GLUCOSE
     Route: 041
  16. RITUXIMAB [Suspect]
     Active Substance: RITUXIMAB
     Indication: Non-Hodgkin^s lymphoma
     Dosage: DAY 1; FOURTH CYCLE OF R-CHOEP CHEMOTHERAPY; RITUXIMAB 600 MG + 5% GLUCOSE 600 ML
     Route: 041
     Dates: start: 20200801, end: 20200801
  17. RITUXIMAB [Suspect]
     Active Substance: RITUXIMAB
     Dosage: DOSE RE-INTRODUCED; RITUXIMAB + 5% GLUCOSE
     Route: 041
  18. RITUXIMAB [Suspect]
     Active Substance: RITUXIMAB
     Dosage: FIRST TO THIRD CYCLE OF R-CHOEP CHEMOTHERAPY; RITUXIMAB + 5% GLUCOSE
     Route: 041
  19. VINORELBINE TARTRATE [Suspect]
     Active Substance: VINORELBINE TARTRATE
     Indication: Non-Hodgkin^s lymphoma
     Dosage: DAY 1; FOURTH CYCLE OF R-CHOEP CHEMOTHERAPY; VINORELBINE TARTRATE 40 MG + NORMAL SALINE 250 ML
     Route: 041
     Dates: start: 20200801, end: 20200801
  20. VINORELBINE TARTRATE [Suspect]
     Active Substance: VINORELBINE TARTRATE
     Dosage: DOSE RE-INTRODUCED; VINORELBINE TARTRATE+ NORMAL SALINE
     Route: 041
  21. VINORELBINE TARTRATE [Suspect]
     Active Substance: VINORELBINE TARTRATE
     Dosage: FIRST TO THIRD CYCLE OF R-CHOEP CHEMOTHERAPY; VINORELBINE TARTRATE + NORMAL SALINE
     Route: 041
  22. ETOPOSIDE [Suspect]
     Active Substance: ETOPOSIDE
     Indication: Non-Hodgkin^s lymphoma
     Dosage: DAY 1, 3 AND 5; FOURTH CYCLE OF R-CHOEP CHEMOTHERAPY; ETOPOSIDE 0.1 G + NORMAL SALINE 500 ML
     Route: 041
     Dates: start: 20200801, end: 20200805
  23. ETOPOSIDE [Suspect]
     Active Substance: ETOPOSIDE
     Dosage: DOSE RE-INTRODUCED; ETOPOSIDE + NORMAL SALINE
     Route: 041
  24. ETOPOSIDE [Suspect]
     Active Substance: ETOPOSIDE
     Dosage: FIRST TO THIRD CYCLE OF R-CHOEP CHEMOTHERAPY; ETOPOSIDE + NORMAL SALINE
     Route: 041
  25. LEUCOGEN [Concomitant]
     Active Substance: LEUCOGEN
     Indication: Prophylaxis
     Dosage: TABLETS
     Route: 065
     Dates: start: 202008

REACTIONS (8)
  - White blood cell count decreased [Recovered/Resolved]
  - Agranulocytosis [Recovered/Resolved]
  - Anaemia [Recovered/Resolved]
  - Platelet disorder [Recovered/Resolved]
  - White blood cell count decreased [Recovered/Resolved]
  - Agranulocytosis [Recovered/Resolved]
  - Platelet disorder [Recovered/Resolved]
  - Anaemia [Recovered/Resolved]

NARRATIVE: CASE EVENT DATE: 20200810
